FAERS Safety Report 8575430-7 (Version None)
Quarter: 2012Q2

REPORT INFORMATION
  Report Type: 
  Country: None (occurrence: None)
  Receive Date: 20120423
  Receipt Date: 20090804
  Transmission Date: 20120825
  Serious: Yes (Other)
  Sender: FDA-Public Use
  Company Number: PHEH2009US07645

PATIENT
  Age: 77 Year
  Sex: Male

DRUGS (13)
  1. FLOMAX [Concomitant]
  2. ENALAPRIL MALEATE [Concomitant]
  3. FOLIC ACID [Concomitant]
  4. CLOTRIMAZOLE [Concomitant]
  5. LEVOTHROID [Concomitant]
  6. PROMETHAZINE [Concomitant]
  7. KLOR-CON [Concomitant]
  8. LASIX [Concomitant]
  9. CIPRO [Concomitant]
  10. EXJADE [Suspect]
     Indication: ANAEMIA
     Dosage: 500 MG, BID, ORAL
     Route: 048
     Dates: start: 20090623, end: 20090624
  11. ALDACTONE [Concomitant]
  12. NADOLOL [Concomitant]
  13. HYDROXYZINE [Concomitant]

REACTIONS (1)
  - HYPOACUSIS [None]
